FAERS Safety Report 7455538-X (Version None)
Quarter: 2011Q2

REPORT INFORMATION
  Report Type: 
  Country: None (occurrence: None)
  Receive Date: 20110503
  Receipt Date: 20101207
  Transmission Date: 20111010
  Serious: Yes (Hospitalization, Other)
  Sender: FDA-Public Use
  Company Number: US-BAYER-201037559NA

PATIENT
  Age: 19 Year
  Sex: Female
  Weight: 90.7 kg

DRUGS (8)
  1. YAZ [Suspect]
     Indication: PREMENSTRUAL SYNDROME
  2. YASMIN [Suspect]
     Indication: ACNE
  3. LEVAQUIN [Concomitant]
  4. ZMAX ER [Concomitant]
  5. DROSPIRENONE AND ETHINYL ESTRADIOL [Suspect]
     Indication: ACNE
  6. AZITHROMYCIN [Concomitant]
  7. CIPROFLOXACIN [Concomitant]
  8. YAZ [Suspect]
     Indication: ACNE

REACTIONS (3)
  - CHOLECYSTITIS CHRONIC [None]
  - INJURY [None]
  - GALLBLADDER DISORDER [None]
